FAERS Safety Report 9357518 (Version 2)
Quarter: 2013Q3

REPORT INFORMATION
  Report Type: Report from Study
  Country: FR (occurrence: FR)
  Receive Date: 20130620
  Receipt Date: 20130708
  Transmission Date: 20140515
  Serious: Yes (Hospitalization)
  Sender: FDA-Public Use
  Company Number: FR-ROCHE-1237494

PATIENT
  Age: 69 Year
  Sex: Male
  Weight: 81 kg

DRUGS (5)
  1. VISMODEGIB [Suspect]
     Indication: BASAL CELL CARCINOMA
     Dosage: MOST RECENT DOSE PRIOR TO SAE: 11/JUN/2013
     Route: 048
     Dates: start: 20130314
  2. PREDNISONE [Concomitant]
     Indication: TEMPORAL ARTERITIS
     Route: 065
     Dates: start: 201302, end: 20130313
  3. PREDNISONE [Concomitant]
     Route: 065
     Dates: start: 20130314
  4. CHOLECALCIFEROL [Concomitant]
     Indication: VITAMIN D DEFICIENCY
     Route: 065
     Dates: start: 200808
  5. OMEPRAZOLE [Concomitant]
     Indication: TEMPORAL ARTERITIS
     Route: 065
     Dates: start: 201108

REACTIONS (1)
  - Atrial fibrillation [Recovered/Resolved]
